FAERS Safety Report 9138296 (Version 1)
Quarter: 2013Q1

REPORT INFORMATION
  Report Type: Spontaneous
  Country: GB (occurrence: GB)
  Receive Date: 20130305
  Receipt Date: 20130305
  Transmission Date: 20140127
  Serious: Yes (Other)
  Sender: FDA-Public Use
  Company Number: GB-SP-2013-03477

PATIENT
  Sex: Female

DRUGS (1)
  1. BCG  THERAPEUTICS [Suspect]
     Indication: BLADDER CANCER
     Route: 043
     Dates: start: 201005, end: 201008

REACTIONS (9)
  - Arthritis reactive [Unknown]
  - Temporomandibular joint syndrome [Recovered/Resolved]
  - Trismus [Recovered/Resolved]
  - Dyskinesia [Recovered/Resolved]
  - Hypophagia [Recovered/Resolved]
  - Weight decreased [Recovered/Resolved]
  - Synovitis [Unknown]
  - Joint swelling [Unknown]
  - Plantar fasciitis [Unknown]
